FAERS Safety Report 5999759-1 (Version None)
Quarter: 2008Q4

REPORT INFORMATION
  Report Type: 
  Country: None (occurrence: None)
  Receive Date: 20081211
  Receipt Date: 20081211
  Transmission Date: 20090506
  Serious: No
  Sender: FDA-Public Use
  Company Number: None

PATIENT
  Sex: Male
  Weight: 62.1428 kg

DRUGS (1)
  1. OXCARBAZEPINE [Suspect]
     Indication: AFFECTIVE DISORDER
     Dosage: 300MG ONCE AM, TWICE PM PO
     Route: 048
     Dates: start: 20081001

REACTIONS (3)
  - AGGRESSION [None]
  - EDUCATIONAL PROBLEM [None]
  - PRODUCT QUALITY ISSUE [None]
